FAERS Safety Report 22528596 (Version 1)
Quarter: 2023Q2

REPORT INFORMATION
  Report Type: Spontaneous
  Country: CN (occurrence: None)
  Receive Date: 20230607
  Receipt Date: 20230607
  Transmission Date: 20230722
  Serious: Yes (Other)
  Sender: FDA-Public Use
  Company Number: CN-ROCHE-3362095

PATIENT

DRUGS (6)
  1. MABTHERA [Suspect]
     Active Substance: RITUXIMAB
     Indication: Rheumatic disorder
     Route: 065
  2. PREDNISOLONE [Concomitant]
     Active Substance: PREDNISOLONE
     Dosage: GREATER THAN OR EQUAL TO 30MG, PER DAY,4 WEEKS DURATION
  3. TRIMETHOPRIM [Concomitant]
     Active Substance: TRIMETHOPRIM
     Indication: Pneumocystis jirovecii pneumonia
     Route: 065
  4. TRIMETHOPRIM [Concomitant]
     Active Substance: TRIMETHOPRIM
  5. TRIMETHOPRIM [Concomitant]
     Active Substance: TRIMETHOPRIM
  6. SULFAMETHOXAZOLE [Concomitant]
     Active Substance: SULFAMETHOXAZOLE
     Indication: Pneumocystis jirovecii pneumonia

REACTIONS (10)
  - Leukopenia [Unknown]
  - Anaemia [Unknown]
  - Thrombocytopenia [Unknown]
  - Aspartate aminotransferase increased [Unknown]
  - Alanine aminotransferase increased [Unknown]
  - Hyponatraemia [Unknown]
  - Azotaemia [Unknown]
  - Rash [Unknown]
  - Pancytopenia [Unknown]
  - Pneumocystis jirovecii pneumonia [Unknown]
